FAERS Safety Report 7393138-0 (Version None)
Quarter: 2011Q2

REPORT INFORMATION
  Report Type: 
  Country: None (occurrence: None)
  Receive Date: 20110404
  Receipt Date: 20110325
  Transmission Date: 20111010
  Serious: Yes (Hospitalization)
  Sender: FDA-Public Use
  Company Number: PHHO2011US02645

PATIENT
  Sex: Male
  Weight: 77 kg

DRUGS (27)
  1. AFINITOR [Suspect]
     Indication: COLORECTAL CANCER
     Dosage: UNK
     Route: 048
     Dates: start: 20101119, end: 20101122
  2. FLUOROURACIL [Concomitant]
  3. EMEND [Concomitant]
  4. AVASTIN [Suspect]
     Indication: COLORECTAL CANCER
     Dosage: UNK
     Dates: start: 20101119
  5. ONDANSETRON [Concomitant]
  6. NITROGLYCERIN [Concomitant]
  7. MAGNESIUM SULFATE [Concomitant]
  8. HYDROCODONE [Concomitant]
  9. ASPIRIN [Concomitant]
  10. LORAZEPAM [Concomitant]
  11. LISINOPRIL [Concomitant]
  12. DEXAMETHASONE [Concomitant]
  13. CLOPIDOGREL [Concomitant]
  14. METOPROLOL TARTRATE [Concomitant]
  15. COMPAZINE [Concomitant]
  16. PROCHLORPERAZINE [Concomitant]
  17. ZOFRAN [Concomitant]
  18. LIDOCAINE [Concomitant]
  19. SIMVASTATIN [Concomitant]
  20. LOPERAMIDE [Concomitant]
  21. METOCLOPRAMIDE [Concomitant]
  22. IRINOTECAN [Suspect]
     Indication: COLORECTAL CANCER
     Dosage: UNK
     Dates: start: 20101210
  23. OXALIPLATIN [Concomitant]
     Indication: COLORECTAL CANCER
     Dosage: UNK
  24. ACETAMINOPHEN [Concomitant]
  25. DIPHENOXYLATE [Concomitant]
  26. OMEPRAZOLE [Concomitant]
  27. DECADRON [Concomitant]

REACTIONS (13)
  - DIZZINESS POSTURAL [None]
  - DEHYDRATION [None]
  - ASTHENIA [None]
  - NAUSEA [None]
  - HYPOTENSION [None]
  - FATIGUE [None]
  - RENAL FAILURE ACUTE [None]
  - URINE OUTPUT DECREASED [None]
  - DIARRHOEA [None]
  - HYPOPHAGIA [None]
  - FAILURE TO THRIVE [None]
  - VOMITING [None]
  - MALAISE [None]
